FAERS Safety Report 8048653-3 (Version None)
Quarter: 2012Q1

REPORT INFORMATION
  Report Type: 
  Country: None (occurrence: None)
  Receive Date: 20120117
  Receipt Date: 20120109
  Transmission Date: 20120608
  Serious: Yes (Congenital Anomaly, Other)
  Sender: FDA-Public Use
  Company Number: US-UCBSA-049376

PATIENT
  Sex: Male
  Weight: 2.8 kg

DRUGS (3)
  1. KEPPRA [Suspect]
     Dosage: 2500 MG
     Route: 064
     Dates: end: 20081215
  2. KEPPRA [Suspect]
     Dosage: 4000 MG
     Route: 064
     Dates: start: 20081215, end: 20090521
  3. KEPPRA [Suspect]
     Indication: EPILEPSY
     Dosage: 4250 MG
     Route: 064
     Dates: start: 20090521, end: 20090604

REACTIONS (2)
  - FOETAL EXPOSURE DURING PREGNANCY [None]
  - CRYPTORCHISM [None]
